FAERS Safety Report 17663517 (Version 5)
Quarter: 2020Q2

REPORT INFORMATION
  Report Type: Spontaneous
  Country: ES (occurrence: ES)
  Receive Date: 20200413
  Receipt Date: 20200504
  Transmission Date: 20200713
  Serious: Yes (Hospitalization, Other)
  Sender: FDA-Public Use
  Company Number: ES-ABBVIE-20K-144-3357938-00

PATIENT
  Age: 76 Year
  Sex: Male
  Weight: 67 kg

DRUGS (3)
  1. VENCLYXTO [Suspect]
     Active Substance: VENETOCLAX
     Indication: CHRONIC LYMPHOCYTIC LEUKAEMIA REFRACTORY
     Route: 048
     Dates: start: 201811, end: 20200409
  2. KALETRA [Suspect]
     Active Substance: LOPINAVIR\RITONAVIR
     Indication: CORONAVIRUS INFECTION
     Route: 048
     Dates: start: 20200408, end: 20200412
  3. VENCLYXTO [Suspect]
     Active Substance: VENETOCLAX
     Route: 048
     Dates: start: 202004

REACTIONS (11)
  - Serum ferritin increased [Unknown]
  - Lymphopenia [Unknown]
  - Secondary immunodeficiency [Unknown]
  - Pneumonia [Unknown]
  - Asthenia [Unknown]
  - Neutrophilia [Unknown]
  - Oxygen saturation decreased [Unknown]
  - Coronavirus infection [Recovering/Resolving]
  - Embolism [Unknown]
  - Decreased appetite [Unknown]
  - Off label use [Unknown]

NARRATIVE: CASE EVENT DATE: 2020
